FAERS Safety Report 7652060 (Version 3)
Quarter: 2014Q1

REPORT INFORMATION
  Report Type: Spontaneous
  Country: US (occurrence: US)
  Receive Date: 20101101
  Receipt Date: 20140116
  Transmission Date: 20141002
  Serious: Yes (Hospitalization, Other)
  Sender: FDA-Public Use
  Company Number: US-BAYER-201038468NA

PATIENT
  Age: 27 Year
  Sex: Female
  Weight: 86.17 kg

DRUGS (2)
  1. YASMIN [Suspect]
     Indication: CONTRACEPTION
     Route: 048
     Dates: start: 200108, end: 200403
  2. VITAMIN C [Concomitant]
     Dosage: UNK
     Dates: start: 2001

REACTIONS (2)
  - Cholelithiasis [Unknown]
  - Cholecystitis chronic [None]
